FAERS Safety Report 23615540 (Version 2)
Quarter: 2024Q1

REPORT INFORMATION
  Report Type: Spontaneous
  Country: US (occurrence: US)
  Receive Date: 20240311
  Receipt Date: 20240319
  Transmission Date: 20240410
  Serious: No
  Sender: FDA-Public Use
  Company Number: US-AMGEN-USASP2024048799

PATIENT
  Age: 71 Year
  Sex: Female

DRUGS (1)
  1. REPATHA [Suspect]
     Active Substance: EVOLOCUMAB
     Indication: Cardiac disorder
     Dosage: 420 MILLIGRAM, Q4WK
     Route: 065

REACTIONS (4)
  - Drug dose omission by device [Unknown]
  - Incorrect disposal of product [Unknown]
  - Product communication issue [Unknown]
  - Product administration error [Unknown]

NARRATIVE: CASE EVENT DATE: 20240306
